FAERS Safety Report 6344647-4 (Version None)
Quarter: 2009Q3

REPORT INFORMATION
  Report Type: 
  Country: None (occurrence: None)
  Receive Date: 20090903
  Receipt Date: 20090825
  Transmission Date: 20100115
  Serious: Yes (Other)
  Sender: FDA-Public Use
  Company Number: 363766

PATIENT
  Age: 49 Year
  Sex: Male

DRUGS (4)
  1. (VANCOMYCIN) [Suspect]
     Indication: STAPHYLOCOCCAL INFECTION
     Dosage: INTRAVENOUS
     Route: 042
  2. EMTRICITABINE AND TENOFOVIR DISOPROXIL FUMARATE [Suspect]
     Indication: ACQUIRED IMMUNODEFICIENCY SYNDROME
  3. (TIPRANAVIR W/RITONAVIR) [Concomitant]
  4. (ENFUVIRTIDE) [Concomitant]

REACTIONS (10)
  - ARTHRITIS INFECTIVE [None]
  - BLOOD PHOSPHORUS INCREASED [None]
  - DRUG INTERACTION [None]
  - INJURY [None]
  - MULTIPLE-DRUG RESISTANCE [None]
  - OSTEOMYELITIS [None]
  - RENAL FAILURE ACUTE [None]
  - RENAL TUBULAR NECROSIS [None]
  - STAPHYLOCOCCAL INFECTION [None]
  - THERAPEUTIC AGENT TOXICITY [None]
